FAERS Safety Report 10945334 (Version 2)
Quarter: 2015Q2

REPORT INFORMATION
  Report Type: Spontaneous
  Country: US (occurrence: US)
  Receive Date: 20150323
  Receipt Date: 20150430
  Transmission Date: 20150821
  Serious: Yes (Other)
  Sender: FDA-Public Use
  Company Number: US-PFIZER INC-2015096823

PATIENT
  Age: 51 Year
  Sex: Female

DRUGS (1)
  1. ADVIL [Suspect]
     Active Substance: IBUPROFEN
     Indication: PAIN
     Dosage: UNK UNK, AS NEEDED
     Dates: start: 201503

REACTIONS (9)
  - Feeding disorder [Recovering/Resolving]
  - Hypersensitivity [Not Recovered/Not Resolved]
  - Drug effect incomplete [Unknown]
  - Choking [Recovering/Resolving]
  - Dysphagia [Recovering/Resolving]
  - Stomatitis [Recovering/Resolving]
  - Pain [Not Recovered/Not Resolved]
  - Retching [Recovering/Resolving]
  - Blister [Recovering/Resolving]
